FAERS Safety Report 18268570 (Version 1)
Quarter: 2020Q3

REPORT INFORMATION
  Report Type: Spontaneous
  Country: US (occurrence: US)
  Receive Date: 20200915
  Receipt Date: 20200915
  Transmission Date: 20201103
  Serious: No
  Sender: FDA-Public Use
  Company Number: US-PERRIGO-19US009278

PATIENT
  Age: 66 Year
  Sex: Female
  Weight: 83.9 kg

DRUGS (4)
  1. LYRICA [Concomitant]
     Active Substance: PREGABALIN
     Indication: ARTHRITIS
     Dosage: UNK
     Route: 065
     Dates: start: 2016
  2. MINOXIDIL. [Suspect]
     Active Substance: MINOXIDIL
     Indication: ALOPECIA
     Dosage: 1 ML, BID
     Route: 061
     Dates: start: 201908, end: 20190904
  3. SULINDAC. [Concomitant]
     Active Substance: SULINDAC
     Indication: ARTHRITIS
  4. SULINDAC. [Concomitant]
     Active Substance: SULINDAC
     Indication: INFLAMMATION
     Dosage: UNK
     Route: 065
     Dates: start: 2009

REACTIONS (3)
  - Application site scab [Recovering/Resolving]
  - Application site pain [Recovering/Resolving]
  - Application site pruritus [Recovering/Resolving]

NARRATIVE: CASE EVENT DATE: 201908
